FAERS Safety Report 8935359 (Version 1)
Quarter: 2012Q4

REPORT INFORMATION
  Report Type: Spontaneous
  Country: US (occurrence: None)
  Receive Date: 20121127
  Receipt Date: 20121127
  Transmission Date: 20130627
  Serious: No
  Sender: FDA-Public Use
  Company Number: None

PATIENT
  Sex: Female

DRUGS (1)
  1. ENBREL SURECLICK 50MG AMGEN INC [Suspect]
     Indication: ANKYLOSING SPONDYLITIS
     Dosage: 50mg qweek sq
     Route: 058
     Dates: start: 20111126, end: 20121116

REACTIONS (1)
  - Disturbance in attention [None]
